FAERS Safety Report 16880831 (Version 1)
Quarter: 2019Q4

REPORT INFORMATION
  Report Type: Spontaneous
  Country: JP (occurrence: JP)
  Receive Date: 20191003
  Receipt Date: 20191003
  Transmission Date: 20200122
  Serious: Yes (Other)
  Sender: FDA-Public Use
  Company Number: JP-ASTRAZENECA-2019SF38800

PATIENT

DRUGS (2)
  1. VIZIMPRO [Suspect]
     Active Substance: DACOMITINIB
     Dosage: 30.0MG UNKNOWN
     Route: 065
  2. TAGRISSO [Suspect]
     Active Substance: OSIMERTINIB
     Route: 048

REACTIONS (1)
  - Malignant neoplasm progression [Unknown]
